FAERS Safety Report 21879437 (Version 1)
Quarter: 2023Q1

REPORT INFORMATION
  Report Type: Report from Study
  Country: US (occurrence: US)
  Receive Date: 20230118
  Receipt Date: 20230118
  Transmission Date: 20230418
  Serious: No
  Sender: FDA-Public Use
  Company Number: US-ABBVIE-4272201

PATIENT
  Age: 49 Year
  Sex: Male

DRUGS (1)
  1. SKYRIZI [Suspect]
     Active Substance: RISANKIZUMAB-RZAA
     Indication: Psoriasis
     Dosage: TITRATION: 150 MG SUBCUTANEOUS INJECTION AT WEEK 0, WEEK 4, THEN EVERY 12 WEEKS THEREAFTER.?FREQU...
     Route: 058
     Dates: start: 20230110

REACTIONS (1)
  - Psoriasis [Not Recovered/Not Resolved]

NARRATIVE: CASE EVENT DATE: 20230101
